FAERS Safety Report 8053650-8 (Version None)
Quarter: 2012Q1

REPORT INFORMATION
  Report Type: 
  Country: None (occurrence: None)
  Receive Date: 20120118
  Receipt Date: 20120113
  Transmission Date: 20120608
  Serious: No
  Sender: FDA-Public Use
  Company Number: US-PFIZER INC-2012011049

PATIENT
  Sex: Male
  Weight: 34 kg

DRUGS (3)
  1. JUNIOR STRENGTH ADVIL [Suspect]
     Indication: PYREXIA
  2. JUNIOR STRENGTH ADVIL [Suspect]
     Indication: VOMITING
     Dosage: TWO AND HALF TABLETS OF 100 MG ONCE
     Route: 048
     Dates: start: 20120112, end: 20120113
  3. JUNIOR STRENGTH ADVIL [Suspect]
     Indication: DIARRHOEA

REACTIONS (4)
  - INSOMNIA [None]
  - ABNORMAL BEHAVIOUR [None]
  - HALLUCINATION [None]
  - CONFUSIONAL STATE [None]
